FAERS Safety Report 6172706-8 (Version None)
Quarter: 2009Q2

REPORT INFORMATION
  Report Type: 
  Country: None (occurrence: None)
  Receive Date: 20090430
  Receipt Date: 20090429
  Transmission Date: 20091009
  Serious: Yes (Hospitalization, Other)
  Sender: FDA-Public Use
  Company Number: US-BIOGENIDEC-2009BI001649

PATIENT
  Age: 53 Year
  Sex: Male

DRUGS (5)
  1. AVONEX [Suspect]
     Indication: MULTIPLE SCLEROSIS
     Route: 030
  2. AVONEX [Suspect]
     Route: 030
  3. SEDATIVES (NOS) [Concomitant]
     Indication: DRUG USE FOR UNKNOWN INDICATION
  4. HYPNOTICS (NOS) [Concomitant]
     Indication: DRUG USE FOR UNKNOWN INDICATION
  5. BENZODIAZEPINES (NOS) [Concomitant]
     Indication: DRUG USE FOR UNKNOWN INDICATION

REACTIONS (3)
  - AORTIC DISSECTION [None]
  - MENTAL STATUS CHANGES [None]
  - PYREXIA [None]
